FAERS Safety Report 23529604 (Version 1)
Quarter: 2024Q1

REPORT INFORMATION
  Report Type: Spontaneous
  Country: CH (occurrence: CH)
  Receive Date: 20240216
  Receipt Date: 20240216
  Transmission Date: 20240410
  Serious: Yes (Death)
  Sender: FDA-Public Use
  Company Number: None

PATIENT
  Age: 89 Year
  Sex: Male
  Weight: 90.6 kg

DRUGS (18)
  1. XARELTO [Suspect]
     Active Substance: RIVAROXABAN
     Dosage: 15 MG N/A DOSE EVERY 1 DAY
     Route: 048
     Dates: start: 20240103, end: 20240104
  2. XARELTO [Suspect]
     Active Substance: RIVAROXABAN
     Indication: Atrial fibrillation
     Dosage: 20 MG N/A DOSE EVERY 24 HOUR
     Route: 048
     Dates: start: 20130101, end: 20240103
  3. ALDACTONE [Concomitant]
     Active Substance: SPIRONOLACTONE
     Indication: Hypertensive heart disease
     Dosage: 25 MG N/A DOSE EVERY 24 HOUR
     Route: 048
     Dates: end: 20240102
  4. ATROVENT [Concomitant]
     Active Substance: IPRATROPIUM BROMIDE
     Indication: Atypical pneumonia
     Dosage: 250 MCG/2ML; FROM 04.JAN.2024: EVERY 2 HOURS
     Route: 055
     Dates: start: 20240102, end: 20240105
  5. PERINDOPRIL [Concomitant]
     Active Substance: PERINDOPRIL
     Indication: Coronary artery disease
     Dosage: 5 MG N/A DOSE EVERY 24 HOUR
     Route: 048
     Dates: end: 20240102
  6. DAPAGLIFLOZIN [Concomitant]
     Active Substance: DAPAGLIFLOZIN
     Indication: Hypertensive heart disease
     Dosage: 10 MG N/A DOSE EVERY 24 HOUR
     Route: 048
     Dates: end: 20240105
  7. NEBIVOLOL [Concomitant]
     Active Substance: NEBIVOLOL
     Indication: Coronary artery disease
     Dosage: 5 MG N/A DOSE EVERY 12 HOUR
     Route: 048
     Dates: end: 20240102
  8. PANTOZOL [Concomitant]
     Active Substance: PANTOPRAZOLE SODIUM
     Indication: Product used for unknown indication
     Dosage: 20 MG N/A DOSE EVERY 24 HOU
     Route: 048
     Dates: start: 202311, end: 20240105
  9. CALCIUM CHLORIDE\MAGNESIUM CHLORIDE\MALIC ACID\POTASSIUM CHLORIDE\SODI [Concomitant]
     Active Substance: CALCIUM CHLORIDE\MAGNESIUM CHLORIDE\MALIC ACID\POTASSIUM CHLORIDE\SODIUM ACETATE\SODIUM CHLORIDE
     Indication: Product used for unknown indication
     Dosage: 1000 ML N/A DOSE EVERY 1 DAY
     Route: 042
     Dates: start: 20240102, end: 20240104
  10. ROCEPHIN [Concomitant]
     Active Substance: CEFTRIAXONE SODIUM
     Indication: Product used for unknown indication
     Dosage: IN TOTAL
     Route: 042
     Dates: start: 20240101, end: 20240101
  11. SERETIDE [Concomitant]
     Active Substance: FLUTICASONE PROPIONATE\SALMETEROL XINAFOATE
     Indication: Asthma
     Dosage: N/A N/A N/A DOSE EVERY 12 HOUR
     Route: 055
     Dates: end: 20240105
  12. TORSEMIDE [Concomitant]
     Active Substance: TORSEMIDE
     Indication: Hypertensive heart disease
     Dosage: 10 MG N/A DOSE EVERY 24 HOU
     Route: 048
     Dates: end: 20240102
  13. VENTOLIN [Concomitant]
     Active Substance: ALBUTEROL SULFATE
     Indication: Atypical pneumonia
     Dosage: FROM 04.JAN.2024: EVERY 2 HOURS
     Route: 055
     Dates: start: 20240102, end: 20240105
  14. CLARITHROMYCIN [Interacting]
     Active Substance: CLARITHROMYCIN
     Indication: Atypical pneumonia
     Dosage: 2 SEPARATED DOSES
     Route: 048
     Dates: start: 20240101, end: 20240103
  15. PIPERACILLIN SODIUM\TAZOBACTAM SODIUM [Interacting]
     Active Substance: PIPERACILLIN SODIUM\TAZOBACTAM SODIUM
     Indication: Product used for unknown indication
     Dosage: 2.25 G N/A DOSE EVERY N/A N/A
     Route: 042
     Dates: start: 20240101, end: 20240101
  16. PIPERACILLIN SODIUM\TAZOBACTAM SODIUM [Interacting]
     Active Substance: PIPERACILLIN SODIUM\TAZOBACTAM SODIUM
     Dosage: 4.5 G N/A DOSE EVERY 8 HOUR
     Route: 042
     Dates: start: 20240102
  17. PREDNISOLONE [Interacting]
     Active Substance: PREDNISOLONE
     Indication: Product used for unknown indication
     Dosage: UNK
     Route: 048
     Dates: start: 20231107, end: 20231128
  18. DOXYCYCLINE [Interacting]
     Active Substance: DOXYCYCLINE
     Indication: Product used for unknown indication
     Dosage: 100 MG N/A DOSE EVERY 12 HOU
     Route: 065
     Dates: start: 20240103

REACTIONS (1)
  - Pulmonary haemorrhage [Fatal]

NARRATIVE: CASE EVENT DATE: 20240104
